FAERS Safety Report 18042853 (Version 1)
Quarter: 2020Q3

REPORT INFORMATION
  Report Type: Spontaneous
  Country: US (occurrence: US)
  Receive Date: 20200716
  Receipt Date: 20200716
  Transmission Date: 20201103
  Serious: Yes (Other)
  Sender: FDA-Public Use
  Company Number: None

PATIENT
  Age: 33 Year
  Sex: Male
  Weight: 96.75 kg

DRUGS (2)
  1. CUROLOGY, TRETINOIN [Suspect]
     Active Substance: TRETINOIN
     Indication: ACNE
     Route: 061
     Dates: start: 20181121, end: 20200614
  2. CUROLOGY, TRETINOIN [Suspect]
     Active Substance: TRETINOIN
     Indication: SKIN WRINKLING
     Route: 061
     Dates: start: 20181121, end: 20200614

REACTIONS (6)
  - Male sexual dysfunction [None]
  - Erectile dysfunction [None]
  - Frustration tolerance decreased [None]
  - Sexually transmitted disease [None]
  - Chlamydial infection [None]
  - Penile discharge [None]

NARRATIVE: CASE EVENT DATE: 20190305
